FAERS Safety Report 10285146 (Version 1)
Quarter: 2014Q3

REPORT INFORMATION
  Report Type: Report from Study
  Country: DE (occurrence: DE)
  Receive Date: 20140708
  Receipt Date: 20140708
  Transmission Date: 20150326
  Serious: Yes (Hospitalization)
  Sender: FDA-Public Use
  Company Number: DE-ABBVIE-14P-062-1255540-00

PATIENT
  Age: 29 Year
  Sex: Female
  Weight: 45 kg

DRUGS (3)
  1. HUMIRA [Suspect]
     Active Substance: ADALIMUMAB
     Indication: CROHN^S DISEASE
     Route: 058
     Dates: start: 20120330
  2. 6-MP [Concomitant]
     Active Substance: MERCAPTOPURINE
     Indication: PRODUCT USED FOR UNKNOWN INDICATION
  3. SYSTEMIC STEROIDS [Concomitant]
     Indication: PRODUCT USED FOR UNKNOWN INDICATION

REACTIONS (6)
  - Anal abscess [Recovered/Resolved]
  - Suicidal ideation [Unknown]
  - Perirectal abscess [Recovered/Resolved]
  - Anal fissure [Unknown]
  - Mental disorder [Unknown]
  - Anal fistula [Recovered/Resolved]

NARRATIVE: CASE EVENT DATE: 20131206
